FAERS Safety Report 4307053-X (Version None)
Quarter: 2004Q1

REPORT INFORMATION
  Report Type: 
  Country: None (occurrence: None)
  Receive Date: 20040226
  Receipt Date: 20040226
  Transmission Date: 20041129
  Serious: Yes (Hospitalization)
  Sender: FDA-Public Use
  Company Number: None

PATIENT
  Sex: Female

DRUGS (4)
  1. ABILIFY [Suspect]
     Indication: MOOD ALTERED
     Dosage: 10 MG PO QHS
     Route: 048
  2. CONCERTA [Concomitant]
  3. CATAPRES [Concomitant]
  4. DEPAKOTE [Concomitant]

REACTIONS (5)
  - ANXIETY [None]
  - MUSCLE CONTRACTIONS INVOLUNTARY [None]
  - MUSCLE RIGIDITY [None]
  - TONGUE DISORDER [None]
  - TREMOR [None]
